FAERS Safety Report 7394569-5 (Version None)
Quarter: 2011Q2

REPORT INFORMATION
  Report Type: 
  Country: None (occurrence: None)
  Receive Date: 20110405
  Receipt Date: 20110324
  Transmission Date: 20111010
  Serious: Yes (Other)
  Sender: FDA-Public Use
  Company Number: US-JNJFOC-20110312947

PATIENT
  Age: 62 Year
  Sex: Male
  Weight: 63.5 kg

DRUGS (2)
  1. MEN'S ROGAINE FOAM [Suspect]
     Route: 061
  2. MEN'S ROGAINE FOAM [Suspect]
     Indication: ALOPECIA
     Route: 061

REACTIONS (3)
  - SKIN EXFOLIATION [None]
  - ERYTHEMA [None]
  - BLISTER [None]
